FAERS Safety Report 5098372-0 (Version None)
Quarter: 2006Q3

REPORT INFORMATION
  Report Type: 
  Country: None (occurrence: None)
  Receive Date: 20060906
  Receipt Date: 20060428
  Transmission Date: 20061208
  Serious: Yes (Other)
  Sender: FDA-Public Use
  Company Number: US-ABBOTT-06P-163-0331974-00

PATIENT
  Sex: Female
  Weight: 53.572 kg

DRUGS (10)
  1. HUMIRA [Suspect]
     Indication: RHEUMATOID ARTHRITIS
     Route: 058
     Dates: start: 20040917, end: 20060227
  2. LEVOTHYROXINE SODIUM [Concomitant]
     Indication: HYPOTHYROIDISM
     Route: 048
  3. CALCIUM GLUCONATE [Concomitant]
     Indication: DRUG USE FOR UNKNOWN INDICATION
     Route: 048
  4. TRIAMTERENE AND HYDROCHLOROTHIAZIDE [Concomitant]
     Indication: HYPERTENSION
     Route: 048
  5. BUCINDOLOL HYDROCHLORIDE [Concomitant]
     Indication: RHEUMATOID ARTHRITIS
     Dates: start: 20030311, end: 20030316
  6. ALENDRONATE SODIUM [Concomitant]
     Indication: OSTEOPOROSIS
     Dates: start: 20030514, end: 20040408
  7. MELOXICAM [Concomitant]
     Indication: RHEUMATOID ARTHRITIS
     Dates: start: 20030714
  8. CYCLOBENZAPRINE HCL [Concomitant]
     Indication: BACK PAIN
     Dates: start: 20031225, end: 20040408
  9. ULTRACET [Concomitant]
     Indication: OSTEOARTHRITIS
     Dates: start: 20041220
  10. HYDROXYCHLOROQUINE PHOSPHATE [Concomitant]
     Indication: IMMUNOSUPPRESSANT DRUG THERAPY
     Dates: start: 20060406

REACTIONS (2)
  - BREAST CANCER RECURRENT [None]
  - RECTAL CANCER [None]
